FAERS Safety Report 22151883 (Version 2)
Quarter: 2023Q1

REPORT INFORMATION
  Report Type: Spontaneous
  Country: AR (occurrence: None)
  Receive Date: 20230329
  Receipt Date: 20230331
  Transmission Date: 20230417
  Serious: Yes (Hospitalization)
  Sender: FDA-Public Use
  Company Number: AR-Merck Healthcare KGaA-9388593

PATIENT
  Age: 46 Year
  Sex: Female

DRUGS (1)
  1. REBIF [Suspect]
     Active Substance: INTERFERON BETA-1A
     Indication: Product used for unknown indication

REACTIONS (20)
  - Arthralgia [Recovering/Resolving]
  - Leptospirosis [Recovering/Resolving]
  - Multiple organ dysfunction syndrome [Unknown]
  - PCO2 decreased [Recovering/Resolving]
  - PO2 decreased [Recovering/Resolving]
  - Blood glucose increased [Recovering/Resolving]
  - Blood urea increased [Recovering/Resolving]
  - Prothrombin level decreased [Recovering/Resolving]
  - Blood lactic acid increased [Recovering/Resolving]
  - Venous oxygen saturation decreased [Recovering/Resolving]
  - Blood calcium decreased [Recovering/Resolving]
  - Escherichia test positive [Unknown]
  - Protein total decreased [Recovering/Resolving]
  - Blood bilirubin increased [Recovering/Resolving]
  - Neutrophil percentage increased [Recovering/Resolving]
  - Red blood cell count decreased [Recovering/Resolving]
  - Haemoglobin decreased [Recovering/Resolving]
  - Haematocrit decreased [Recovering/Resolving]
  - Product administration interrupted [Unknown]
  - Product supply issue [Unknown]
